FAERS Safety Report 6334049-9 (Version None)
Quarter: 2009Q3

REPORT INFORMATION
  Report Type: 
  Country: None (occurrence: None)
  Receive Date: 20090829
  Receipt Date: 20090824
  Transmission Date: 20100115
  Serious: Yes (Other)
  Sender: FDA-Public Use
  Company Number: US-ELI_LILLY_AND_COMPANY-US200908005204

PATIENT
  Sex: Male

DRUGS (9)
  1. HUMALOG [Suspect]
     Dosage: UNK, UNK
     Dates: start: 20081219
  2. HUMULIN R [Suspect]
  3. INSULIN, PORK [Concomitant]
  4. LANTUS [Concomitant]
     Dates: start: 20081219
  5. COZAAR [Concomitant]
  6. ZOCOR [Concomitant]
  7. LEVOTHYROXINE [Concomitant]
     Dosage: 100 MG, UNK
  8. VITAMINS [Concomitant]
  9. ASPIRIN [Concomitant]

REACTIONS (12)
  - BLISTER [None]
  - BLOOD GLUCOSE DECREASED [None]
  - BLOOD GLUCOSE INCREASED [None]
  - CENTRAL OBESITY [None]
  - DEAFNESS UNILATERAL [None]
  - EYE HAEMORRHAGE [None]
  - HYPOGLYCAEMIC COMA [None]
  - MACULAR DEGENERATION [None]
  - MALAISE [None]
  - RASH GENERALISED [None]
  - VISUAL IMPAIRMENT [None]
  - WEIGHT INCREASED [None]
